FAERS Safety Report 19260216 (Version 1)
Quarter: 2021Q2

REPORT INFORMATION
  Report Type: Spontaneous
  Country: BR (occurrence: BR)
  Receive Date: 20210514
  Receipt Date: 20210514
  Transmission Date: 20210717
  Serious: Yes (Other)
  Sender: FDA-Public Use
  Company Number: BR-TAKEDA-2021TUS029488

PATIENT
  Sex: Female
  Weight: 52 kg

DRUGS (3)
  1. MESALAZINE [Suspect]
     Active Substance: MESALAMINE
     Indication: COLITIS ULCERATIVE
     Dosage: UNK
     Route: 065
  2. IMOSEC [Concomitant]
     Active Substance: LOPERAMIDE
     Dosage: 5 MILLIGRAM
     Route: 065
  3. NORIPURUM EV [Suspect]
     Active Substance: IRON POLYMALTOSE
     Indication: ANAEMIA
     Dosage: UNK
     Route: 042
     Dates: start: 2019, end: 202102

REACTIONS (2)
  - Drug dependence [Unknown]
  - Illness [Unknown]
